FAERS Safety Report 5913364-4 (Version None)
Quarter: 2008Q4

REPORT INFORMATION
  Report Type: 
  Country: None (occurrence: None)
  Receive Date: 20081009
  Receipt Date: 20081002
  Transmission Date: 20090506
  Serious: Yes (Other)
  Sender: FDA-Public Use
  Company Number: PHBS2008US05918

PATIENT
  Age: 72 Year
  Sex: Male

DRUGS (4)
  1. VALSARTAN [Suspect]
     Indication: HYPERTENSION
     Route: 065
  2. MOXIFLOXACIN HCL [Suspect]
     Indication: SINUSITIS
     Route: 065
  3. TERAZOSIN HCL [Concomitant]
     Route: 065
  4. FINASTERIDE [Concomitant]

REACTIONS (12)
  - BIOPSY SKIN [None]
  - BLISTER [None]
  - EOSINOPHILIC CELLULITIS [None]
  - ERYTHEMA [None]
  - LICHENOID KERATOSIS [None]
  - LINEAR IGA DISEASE [None]
  - PRURITUS [None]
  - SINUSITIS [None]
  - SKIN DISORDER [None]
  - SKIN OEDEMA [None]
  - SKIN PLAQUE [None]
  - UPPER RESPIRATORY TRACT INFECTION [None]
